FAERS Safety Report 7901925-2 (Version None)
Quarter: 2011Q4

REPORT INFORMATION
  Report Type: 
  Country: None (occurrence: None)
  Receive Date: 20111108
  Receipt Date: 20111103
  Transmission Date: 20120403
  Serious: Yes (Other)
  Sender: FDA-Public Use
  Company Number: US-AMGEN-USASP2011054841

PATIENT
  Age: 81 Year
  Sex: Male
  Weight: 60.317 kg

DRUGS (8)
  1. PREDNISONE [Concomitant]
     Indication: COELIAC DISEASE
  2. TRAMADOL HCL [Concomitant]
  3. ALEVE [Concomitant]
  4. ZOCOR [Concomitant]
     Indication: BLOOD CHOLESTEROL
  5. OMEPRAZOLE [Concomitant]
     Indication: GASTROOESOPHAGEAL REFLUX DISEASE
  6. NPLATE [Suspect]
     Indication: IDIOPATHIC THROMBOCYTOPENIC PURPURA
     Dosage: 300 MUG, UNK
     Dates: start: 20101027, end: 20110412
  7. TIMOLOL MALEATE [Concomitant]
  8. CORTICOSTEROIDS [Concomitant]
     Indication: IDIOPATHIC THROMBOCYTOPENIC PURPURA

REACTIONS (2)
  - THROMBOCYTOPENIA [None]
  - FATIGUE [None]
